FAERS Safety Report 10040237 (Version 1)
Quarter: 2014Q1

REPORT INFORMATION
  Report Type: Spontaneous
  Country: FR (occurrence: FR)
  Receive Date: 20140327
  Receipt Date: 20140327
  Transmission Date: 20141002
  Serious: Yes (Hospitalization)
  Sender: FDA-Public Use
  Company Number: FR-ROCHE-1367329

PATIENT
  Age: 82 Year
  Sex: Female

DRUGS (13)
  1. ROCEPHINE [Suspect]
     Indication: PRODUCT USED FOR UNKNOWN INDICATION
     Route: 030
     Dates: start: 20140212, end: 20140215
  2. HELICIDINE [Suspect]
     Indication: PRODUCT USED FOR UNKNOWN INDICATION
     Route: 048
     Dates: start: 20140212, end: 20140215
  3. DISCOTRINE [Concomitant]
  4. KARDEGIC [Concomitant]
  5. ESOMEPRAZOLE [Concomitant]
  6. PROPRANOLOL [Concomitant]
  7. PRAVASTATIN SODIUM [Concomitant]
  8. SEROPLEX [Concomitant]
  9. LEVOTHYROX [Concomitant]
  10. XANAX [Concomitant]
  11. ZOPICLONE [Concomitant]
  12. PARACETAMOL [Concomitant]
     Route: 048
     Dates: start: 20140212
  13. SOLUPRED (FRANCE) [Concomitant]

REACTIONS (1)
  - Rash pustular [Recovered/Resolved]
